FAERS Safety Report 5979534-4 (Version None)
Quarter: 2008Q4

REPORT INFORMATION
  Report Type: 
  Country: None (occurrence: None)
  Receive Date: 20081126
  Receipt Date: 20081118
  Transmission Date: 20090506
  Serious: Yes (Disabling, Other)
  Sender: FDA-Public Use
  Company Number: 2004-05-0190

PATIENT
  Age: 52 Year
  Sex: Female
  Weight: 60 kg

DRUGS (3)
  1. INTRON A [Suspect]
     Indication: SMALL INTESTINE CARCINOMA
     Dosage: 3 MIU;TIW;SC
     Route: 058
     Dates: start: 20021202, end: 20030401
  2. INTRON A [Suspect]
     Indication: SMALL INTESTINE CARCINOMA
     Dosage: 3 MIU;TIW;SC
     Route: 058
     Dates: start: 20021202, end: 20040319
  3. PEG-INTRON [Suspect]
     Indication: SMALL INTESTINE CARCINOMA
     Dosage: 80 MCG;QW;SC
     Route: 058
     Dates: start: 20030401, end: 20030617

REACTIONS (4)
  - DEAFNESS UNILATERAL [None]
  - EAR DISORDER [None]
  - ILEUS [None]
  - VASCULAR RUPTURE [None]
